FAERS Safety Report 7896819-5 (Version None)
Quarter: 2011Q4

REPORT INFORMATION
  Report Type: 
  Country: None (occurrence: None)
  Receive Date: 20111107
  Receipt Date: 20111101
  Transmission Date: 20120403
  Serious: No
  Sender: FDA-Public Use
  Company Number: US-BIOGENIDEC-2011BI041931

PATIENT
  Age: 64 Year
  Sex: Female

DRUGS (1)
  1. TYSABRI [Suspect]
     Indication: MULTIPLE SCLEROSIS
     Route: 042
     Dates: start: 20110715, end: 20111017

REACTIONS (4)
  - MOUTH ULCERATION [None]
  - NASAL MUCOSAL DISORDER [None]
  - ADVERSE DRUG REACTION [None]
  - PHARYNGEAL ULCERATION [None]
